FAERS Safety Report 8864807 (Version 1)
Quarter: 2012Q4

REPORT INFORMATION
  Report Type: 
  Country: US (occurrence: US)
  Receive Date: 20121024
  Receipt Date: 20121024
  Transmission Date: 20130627
  Serious: No
  Sender: FDA-Public Use
  Company Number: US-AMGEN-USASP2011069434

PATIENT
  Age: 50 Year
  Sex: Female

DRUGS (5)
  1. ENBREL [Suspect]
     Indication: PRODUCT USED FOR UNKNOWN INDICATION
     Dosage: 50 mg, qwk
     Route: 058
  2. SERTRALINE [Concomitant]
     Dosage: 100 mg, UNK
  3. NEURONTIN [Concomitant]
     Dosage: 800 mg, UNK
  4. SYNTHROID [Concomitant]
     Dosage: 125 mug, UNK
  5. NEXIUM                             /01479302/ [Concomitant]
     Dosage: 20 mg, UNK

REACTIONS (2)
  - Erythema [Unknown]
  - Swelling [Unknown]
